FAERS Safety Report 6089677-5 (Version None)
Quarter: 2009Q1

REPORT INFORMATION
  Report Type: 
  Country: None (occurrence: None)
  Receive Date: 20090224
  Receipt Date: 20081218
  Transmission Date: 20090719
  Serious: Yes (Other)
  Sender: FDA-Public Use
  Company Number: ES-B.I. PHARMACEUTICALS,INC./RIDGEFIELD-2009-BP-02193YA

PATIENT
  Age: 71 Year
  Sex: Male

DRUGS (1)
  1. OMNIC OCAS ORODISPERSABLE [Suspect]
     Indication: BENIGN PROSTATIC HYPERPLASIA
     Dosage: .4MG
     Route: 048
     Dates: start: 20071101

REACTIONS (1)
  - DIABETES MELLITUS [None]
